FAERS Safety Report 12759890 (Version 1)
Quarter: 2016Q3

REPORT INFORMATION
  Report Type: Spontaneous
  Country: FR (occurrence: FR)
  Receive Date: 20160919
  Receipt Date: 20160919
  Transmission Date: 20161109
  Serious: Yes (Hospitalization)
  Sender: FDA-Public Use
  Company Number: FR-MYLANLABS-2016M1039415

PATIENT

DRUGS (1)
  1. GEMCITABINE MYLAN 40 MG/ML, SOLUTION ? DILUER POUR PERFUSION [Suspect]
     Active Substance: GEMCITABINE\GEMCITABINE HYDROCHLORIDE
     Indication: PANCREATIC CARCINOMA
     Dosage: UNK UNK, QW
     Dates: start: 20160813

REACTIONS (4)
  - CSF white blood cell count positive [Unknown]
  - Abnormal behaviour [Unknown]
  - Meningitis [Not Recovered/Not Resolved]
  - Psychomotor retardation [Unknown]

NARRATIVE: CASE EVENT DATE: 201608
